FAERS Safety Report 8205384-4 (Version None)
Quarter: 2012Q1

REPORT INFORMATION
  Report Type: 
  Country: None (occurrence: None)
  Receive Date: 20120313
  Receipt Date: 20120227
  Transmission Date: 20120608
  Serious: Yes (Hospitalization)
  Sender: FDA-Public Use
  Company Number: US-WATSON-2012-03797

PATIENT
  Age: 2 Month
  Sex: Male

DRUGS (2)
  1. ACYCLOVIR [Suspect]
     Indication: ENCEPHALITIS HERPES
     Dosage: 45 MG/KG, DAILY
     Route: 042
  2. METHYLPREDNISOLONE [Suspect]
     Indication: ENCEPHALITIS HERPES
     Dosage: PULSE

REACTIONS (2)
  - HERPES SIMPLEX [None]
  - ENCEPHALOMALACIA [None]
